FAERS Safety Report 4531670-5 (Version None)
Quarter: 2004Q4

REPORT INFORMATION
  Report Type: 
  Country: None (occurrence: None)
  Receive Date: 20041216
  Receipt Date: 20041201
  Transmission Date: 20050328
  Serious: Yes (Hospitalization)
  Sender: FDA-Public Use
  Company Number: 211054

PATIENT
  Age: 63 Year
  Sex: Male

DRUGS (3)
  1. AVASTIN [Suspect]
     Indication: RENAL CELL CARCINOMA STAGE UNSPECIFIED
     Dosage: 500 MG, Q2W, INTRAVENOUS
     Route: 042
     Dates: start: 20040823
  2. INTERFERON ALFA-2B (INTERFERON ALFA-2B) [Suspect]
     Indication: RENAL CELL CARCINOMA STAGE UNSPECIFIED
     Dosage: 9 MU, 3/WEEK, SUBCUTANEOUS
     Route: 058
     Dates: start: 20040823
  3. MEGACE [Suspect]
     Indication: DRUG USE FOR UNKNOWN INDICATION

REACTIONS (2)
  - DEEP VEIN THROMBOSIS [None]
  - PULMONARY EMBOLISM [None]
